FAERS Safety Report 8983336 (Version 1)
Quarter: 2012Q4

REPORT INFORMATION
  Report Type: 
  Country: US (occurrence: US)
  Receive Date: 20121224
  Receipt Date: 20121224
  Transmission Date: 20130627
  Serious: Yes (Hospitalization, Other)
  Sender: FDA-Public Use
  Company Number: US-SANOFI-AVENTIS-2012SA090737

PATIENT
  Age: 59 Year
  Sex: Female

DRUGS (4)
  1. LANTUS SOLOSTAR [Suspect]
     Indication: DIABETES MELLITUS
     Route: 058
     Dates: end: 20121210
  2. LANTUS SOLOSTAR [Suspect]
     Indication: DIABETES MELLITUS
     Dosage: 65 units in the am and 60 units in the pm
     Route: 058
     Dates: start: 20121210
  3. SOLOSTAR [Suspect]
     Indication: DIABETES MELLITUS
  4. SOLOSTAR [Suspect]
     Indication: DIABETES MELLITUS

REACTIONS (2)
  - Breast cancer [Unknown]
  - Blood glucose increased [Unknown]
